FAERS Safety Report 7927500-1 (Version None)
Quarter: 2011Q4

REPORT INFORMATION
  Report Type: 
  Country: None (occurrence: None)
  Receive Date: 20111118
  Receipt Date: 20111114
  Transmission Date: 20120403
  Serious: Yes (Hospitalization)
  Sender: FDA-Public Use
  Company Number: IE-AMGEN-IRLSP2011051574

PATIENT
  Age: 64 Year
  Sex: Female

DRUGS (8)
  1. EMEND                              /01627301/ [Concomitant]
  2. AMLID [Concomitant]
  3. KYTRIL [Concomitant]
  4. DEXAMETHASONE [Concomitant]
  5. RAMILO [Concomitant]
  6. ADRIAMYCIN PFS [Concomitant]
     Indication: BREAST CANCER
  7. NEULASTA [Suspect]
     Indication: CHEMOTHERAPY
     Dosage: 6 MG, 2 TIMES/WK
     Route: 058
     Dates: start: 20110823, end: 20110915
  8. CYCLOPHOSPHAMIDE [Concomitant]
     Indication: BREAST CANCER

REACTIONS (1)
  - FEBRILE NEUTROPENIA [None]
